FAERS Safety Report 6144771-5 (Version None)
Quarter: 2009Q2

REPORT INFORMATION
  Report Type: 
  Country: None (occurrence: None)
  Receive Date: 20090406
  Receipt Date: 20090324
  Transmission Date: 20091009
  Serious: Yes (Hospitalization, Other)
  Sender: FDA-Public Use
  Company Number: US-ELI_LILLY_AND_COMPANY-US200902001109

PATIENT
  Age: 91 Year
  Sex: Female

DRUGS (3)
  1. FORTEO [Suspect]
     Dates: start: 20080201
  2. MEGESTROL ACETATE [Concomitant]
     Dosage: 400 ML, DAILY (1/D)
  3. VITAMIN D [Concomitant]
     Dosage: 50000 ML, WEEKLY (1/W)

REACTIONS (4)
  - DISCOMFORT [None]
  - INJECTION SITE PAIN [None]
  - INJECTION SITE REACTION [None]
  - OVARIAN CANCER [None]
